FAERS Safety Report 17097079 (Version 2)
Quarter: 2019Q4

REPORT INFORMATION
  Report Type: Spontaneous
  Country: BE (occurrence: BE)
  Receive Date: 20191202
  Receipt Date: 20191223
  Transmission Date: 20200122
  Serious: Yes (Hospitalization)
  Sender: FDA-Public Use
  Company Number: BE-ROCHE-2478300

PATIENT
  Age: 70 Year
  Sex: Female
  Weight: 64 kg

DRUGS (2)
  1. HERCEPTIN [Suspect]
     Active Substance: TRASTUZUMAB
     Indication: BREAST CANCER
     Route: 041
     Dates: start: 20191010
  2. PERJETA [Suspect]
     Active Substance: PERTUZUMAB
     Indication: BREAST CANCER
     Route: 042
     Dates: start: 20191010

REACTIONS (6)
  - Heart rate decreased [Recovered/Resolved]
  - Loss of consciousness [Recovered/Resolved]
  - Malaise [Recovered/Resolved]
  - Retracted nipple [Recovered/Resolved]
  - Hypotension [Recovered/Resolved]
  - Hyperventilation [Recovered/Resolved]

NARRATIVE: CASE EVENT DATE: 20191010
